FAERS Safety Report 21973936 (Version 1)
Quarter: 2023Q1

REPORT INFORMATION
  Report Type: Spontaneous
  Country: US (occurrence: None)
  Receive Date: 20230209
  Receipt Date: 20230209
  Transmission Date: 20230418
  Serious: Yes (Other)
  Sender: FDA-Public Use
  Company Number: 2023A031776

PATIENT
  Age: 56 Year
  Sex: Female

DRUGS (6)
  1. FARXIGA [Suspect]
     Active Substance: DAPAGLIFLOZIN PROPANEDIOL
     Indication: Product used for unknown indication
     Route: 048
  2. TARPEYO [Suspect]
     Active Substance: BUDESONIDE
     Indication: IgA nephropathy
     Dosage: 8.0MG UNKNOWN
     Dates: start: 20221209
  3. TARPEYO [Suspect]
     Active Substance: BUDESONIDE
     Indication: Haematuria
     Dosage: 8.0MG UNKNOWN
     Dates: start: 20221209
  4. TARPEYO [Suspect]
     Active Substance: BUDESONIDE
     Indication: IgA nephropathy
     Dosage: 16.0MG UNKNOWN
     Route: 048
     Dates: start: 20220524, end: 202212
  5. TARPEYO [Suspect]
     Active Substance: BUDESONIDE
     Indication: Haematuria
     Dosage: 16.0MG UNKNOWN
     Route: 048
     Dates: start: 20220524, end: 202212
  6. LOSARTAN [Concomitant]
     Active Substance: LOSARTAN

REACTIONS (5)
  - Blood cholesterol increased [Recovering/Resolving]
  - IgA nephropathy [Unknown]
  - Haematuria [Unknown]
  - Vomiting [Unknown]
  - Nausea [Unknown]
